FAERS Safety Report 4600265-7 (Version None)
Quarter: 2005Q1

REPORT INFORMATION
  Report Type: 
  Country: None (occurrence: None)
  Receive Date: 20050127
  Receipt Date: 20041103
  Transmission Date: 20050727
  Serious: No
  Sender: FDA-Public Use
  Company Number: USA041183063

PATIENT
  Age: 14 Year
  Sex: Male
  Weight: 54 kg

DRUGS (1)
  1. STRATTERA [Suspect]
     Indication: ATTENTION DEFICIT/HYPERACTIVITY DISORDER
     Dosage: 40 MG DAY
     Dates: start: 20040914, end: 20041015

REACTIONS (7)
  - AGGRESSION [None]
  - ANGER [None]
  - EMOTIONAL DISTRESS [None]
  - HALLUCINATION, AUDITORY [None]
  - IRRITABILITY [None]
  - PSYCHOTIC DISORDER [None]
  - THINKING ABNORMAL [None]
